FAERS Safety Report 9182224 (Version 1)
Quarter: 2012Q4

REPORT INFORMATION
  Report Type: 
  Country: US (occurrence: US)
  Receive Date: 20121030
  Receipt Date: 20121030
  Transmission Date: 20130627
  Serious: No
  Sender: FDA-Public Use
  Company Number: US-GLAXOSMITHKLINE-A0968850A

PATIENT
  Age: 49 Year
  Sex: Male

DRUGS (9)
  1. SEREVENT [Suspect]
     Indication: ASTHMA
     Dosage: 1PUFF Twice per day
     Route: 055
     Dates: start: 2008, end: 2009
  2. LEVOXYL [Concomitant]
  3. MS CONTIN [Concomitant]
  4. BACLOFEN [Concomitant]
  5. CETIRIZINE [Concomitant]
  6. XOPENEX [Concomitant]
  7. Z PACK [Concomitant]
  8. VALIUM [Concomitant]
  9. PLENDIL [Concomitant]

REACTIONS (1)
  - Heart rate irregular [Recovered/Resolved]
